FAERS Safety Report 14486492 (Version 7)
Quarter: 2018Q2

REPORT INFORMATION
  Report Type: Report from Study
  Country: US (occurrence: US)
  Receive Date: 20180205
  Receipt Date: 20180622
  Transmission Date: 20180711
  Serious: Yes (Hospitalization, Other)
  Sender: FDA-Public Use
  Company Number: US-PFIZER INC-2018011884

PATIENT
  Age: 44 Year
  Sex: Female

DRUGS (1)
  1. IBRANCE [Suspect]
     Active Substance: PALBOCICLIB
     Indication: BREAST CANCER METASTATIC
     Dosage: 125 MG, CYCLIC (DAILY/ 3 WEEKS ON 1 WEEK OFF/21 ON, 7 OFF)
     Route: 048
     Dates: start: 20180101

REACTIONS (19)
  - Abdominal discomfort [Recovered/Resolved]
  - Vomiting [Recovered/Resolved]
  - Leukopenia [Unknown]
  - Neutropenia [Recovering/Resolving]
  - Full blood count abnormal [Unknown]
  - Pain [Recovering/Resolving]
  - Nausea [Recovered/Resolved]
  - Dizziness [Unknown]
  - Toothache [Recovered/Resolved]
  - Dyspnoea [Recovering/Resolving]
  - Vertigo [Not Recovered/Not Resolved]
  - Dysphagia [Recovered/Resolved]
  - Fatigue [Unknown]
  - Tooth infection [Recovered/Resolved]
  - Abdominal pain [Recovering/Resolving]
  - Anaemia [Unknown]
  - Decreased appetite [Recovering/Resolving]
  - Back pain [Recovering/Resolving]
  - Headache [Not Recovered/Not Resolved]

NARRATIVE: CASE EVENT DATE: 2018
